FAERS Safety Report 25595240 (Version 4)
Quarter: 2025Q3

REPORT INFORMATION
  Report Type: Report from Study
  Country: CA (occurrence: CA)
  Receive Date: 20250723
  Receipt Date: 20250829
  Transmission Date: 20251021
  Serious: Yes (Other)
  Sender: ALEXION PHARMACEUTICALS
  Company Number: CA-ASTRAZENECA-202507CAN016678CA

PATIENT
  Age: 38 Year
  Sex: Female
  Weight: 70.3 kg

DRUGS (7)
  1. SOLIRIS [Suspect]
     Active Substance: ECULIZUMAB
     Indication: Neuromyelitis optica spectrum disorder
     Dates: start: 20201126, end: 20201217
  2. SOLIRIS [Suspect]
     Active Substance: ECULIZUMAB
  3. NAPROXEN [Concomitant]
     Active Substance: NAPROXEN
  4. ONDANSETRON HYDROCHLORIDE [Concomitant]
     Active Substance: ONDANSETRON HYDROCHLORIDE
  5. PENICILLIN [Concomitant]
     Active Substance: PENICILLIN
     Indication: Prophylaxis
  6. POTASSIUM [Concomitant]
     Active Substance: POTASSIUM
  7. ZITHROMAX [Concomitant]
     Active Substance: AZITHROMYCIN DIHYDRATE

REACTIONS (2)
  - Abortion spontaneous [Recovered/Resolved]
  - Exposure during pregnancy [Recovered/Resolved]

NARRATIVE: CASE EVENT DATE: 20250501
